FAERS Safety Report 9710884 (Version 4)
Quarter: 2014Q4

REPORT INFORMATION
  Report Type: Spontaneous
  Country: US (occurrence: US)
  Receive Date: 20131126
  Receipt Date: 20141024
  Transmission Date: 20150529
  Serious: Yes (Other)
  Sender: FDA-Public Use
  Company Number: US201207002527

PATIENT
  Age: 47 Year
  Sex: Female
  Weight: 67.12 kg

DRUGS (3)
  1. METFORMIN [Concomitant]
     Active Substance: METFORMIN HYDROCHLORIDE
     Indication: TYPE 2 DIABETES MELLITUS
  2. GLIMEPIRIDE. [Concomitant]
     Active Substance: GLIMEPIRIDE
     Indication: TYPE 2 DIABETES MELLITUS
  3. BYDUREON [Suspect]
     Active Substance: EXENATIDE
     Indication: TYPE 2 DIABETES MELLITUS
     Dosage: LOT#73259, EXP:FEB2016,THERAPY ON 21JAN13-ONG?LOT # AAA0388-EXP:AUG2016 LOT#AAA0672
     Route: 058
     Dates: start: 20120622

REACTIONS (11)
  - Malaise [Recovered/Resolved]
  - Macular degeneration [Not Recovered/Not Resolved]
  - Product quality issue [Unknown]
  - Weight decreased [Unknown]
  - Injection site pain [Recovered/Resolved]
  - Injection site nodule [Recovering/Resolving]
  - Incorrect product storage [Unknown]
  - Drug dose omission [Recovered/Resolved]
  - Drug dose omission [Unknown]
  - Lethargy [Recovered/Resolved]
  - Blood glucose increased [Recovered/Resolved]

NARRATIVE: CASE EVENT DATE: 201207
